FAERS Safety Report 7660517 (Version 2)
Quarter: 2013Q1

REPORT INFORMATION
  Report Type: Report from Study
  Country: FR (occurrence: FR)
  Receive Date: 20101108
  Receipt Date: 20130307
  Transmission Date: 20140127
  Serious: Yes (Death, Other)
  Sender: FDA-Public Use
  Company Number: FR-GENZYME-THYM-1002036

PATIENT
  Age: 57 Year
  Sex: Female

DRUGS (7)
  1. THYMOGLOBULINE [Suspect]
     Indication: PRODUCT USED FOR UNKNOWN INDICATION
     Dosage: 182 MG, QD
     Route: 042
     Dates: start: 20100727, end: 20100728
  2. CLOFARABINE [Suspect]
     Indication: ACUTE MYELOID LEUKAEMIA
     Dosage: 52 MG, QD
     Route: 042
     Dates: start: 20100717, end: 20100721
  3. ARACYTINE [Suspect]
     Indication: ACUTE MYELOID LEUKAEMIA
     Dosage: 1.73 G, QD
     Route: 042
     Dates: start: 20100717, end: 20100725
  4. ENDOXAN [Suspect]
     Indication: ACUTE MYELOID LEUKAEMIA
     Dosage: 4.38 G, QD
     Route: 042
     Dates: start: 20100725, end: 20100725
  5. BUSILVEX [Suspect]
     Indication: ACUTE MYELOID LEUKAEMIA
     Dosage: 219 MG, QD
     Route: 042
     Dates: start: 20100726, end: 20100727
  6. CYCLOSPORINE [Suspect]
     Indication: ACUTE MYELOID LEUKAEMIA
     Dosage: 219 MG, QD
     Route: 042
     Dates: start: 20100727, end: 20100801
  7. CELLCEPT [Suspect]
     Indication: ACUTE MYELOID LEUKAEMIA
     Dosage: 2 G, QD
     Route: 048
     Dates: start: 20100727, end: 20100801

REACTIONS (5)
  - Multi-organ failure [Fatal]
  - Acute myeloid leukaemia [Fatal]
  - Septic shock [Fatal]
  - Fungal infection [Fatal]
  - Skin toxicity [Unknown]
